FAERS Safety Report 5192278-4 (Version None)
Quarter: 2006Q4

REPORT INFORMATION
  Report Type: 
  Country: None (occurrence: None)
  Receive Date: 20061220
  Receipt Date: 20061205
  Transmission Date: 20070319
  Serious: Yes (Hospitalization)
  Sender: FDA-Public Use
  Company Number: 2006BI014811

PATIENT
  Sex: Male

DRUGS (5)
  1. AVONEX [Suspect]
     Dosage: 30 UG; IM
     Route: 030
     Dates: start: 20040406
  2. METHOTREXATE [Concomitant]
  3. FOLIC ACID [Concomitant]
  4. ALBUTEROL [Concomitant]
  5. DITROPAN [Concomitant]

REACTIONS (1)
  - ASTHMA [None]
